FAERS Safety Report 14680692 (Version 2)
Quarter: 2018Q1

REPORT INFORMATION
  Report Type: Report from Study
  Country: SE (occurrence: SE)
  Receive Date: 20180326
  Receipt Date: 20180328
  Transmission Date: 20180509
  Serious: Yes (Other)
  Sender: FDA-Public Use
  Company Number: SE-TEVA-2018-SE-872136

PATIENT
  Age: 83 Year
  Sex: Female

DRUGS (4)
  1. CIPROFLOXACIN. [Suspect]
     Active Substance: CIPROFLOXACIN
     Indication: SKIN INFECTION
     Route: 048
  2. ALLOPURINOL. [Suspect]
     Active Substance: ALLOPURINOL
     Route: 048
  3. ENALAPRIL [Suspect]
     Active Substance: ENALAPRIL
     Route: 048
  4. MOXIFLOXACIN. [Suspect]
     Active Substance: MOXIFLOXACIN
     Route: 042

REACTIONS (3)
  - Toxic epidermal necrolysis [Unknown]
  - Paraneoplastic syndrome [Unknown]
  - Acute kidney injury [Unknown]
